FAERS Safety Report 5396469-9 (Version None)
Quarter: 2007Q3

REPORT INFORMATION
  Report Type: 
  Country: None (occurrence: None)
  Receive Date: 20070725
  Receipt Date: 20070716
  Transmission Date: 20080115
  Serious: Yes (Hospitalization)
  Sender: FDA-Public Use
  Company Number: US-JNJFOC-20070703494

PATIENT
  Age: 44 Year
  Sex: Male
  Weight: 92.99 kg

DRUGS (2)
  1. REMICADE [Suspect]
     Indication: PSORIATIC ARTHROPATHY
     Route: 042
  2. MTX [Concomitant]

REACTIONS (2)
  - CARCINOEMBRYONIC ANTIGEN INCREASED [None]
  - PANCREATIC CYST [None]
